FAERS Safety Report 4675149-9 (Version None)
Quarter: 2005Q2

REPORT INFORMATION
  Report Type: 
  Country: None (occurrence: None)
  Receive Date: 20050526
  Receipt Date: 20050401
  Transmission Date: 20051028
  Serious: Yes (Life-Threatening, Disabling)
  Sender: FDA-Public Use
  Company Number: US-MERCK-0504USA00230

PATIENT
  Age: 82 Year
  Sex: Female
  Weight: 65 kg

DRUGS (6)
  1. FOSAMAX [Suspect]
     Indication: OSTEOPOROSIS
     Route: 048
     Dates: start: 20040101, end: 20050218
  2. NORVASC [Concomitant]
     Route: 065
  3. DETROL LA [Concomitant]
     Route: 065
  4. SYNTHROID [Concomitant]
     Route: 065
  5. LEXAPRO [Concomitant]
     Route: 065
  6. ANTRIL [Concomitant]
     Route: 065

REACTIONS (10)
  - ABDOMINAL DISTENSION [None]
  - DYSPHAGIA [None]
  - DYSPNOEA [None]
  - ERYTHEMA [None]
  - EYE PAIN [None]
  - EYE SWELLING [None]
  - SWELLING FACE [None]
  - THROAT IRRITATION [None]
  - TOOTH DISCOLOURATION [None]
  - TOOTHACHE [None]
